FAERS Safety Report 10989523 (Version 2)
Quarter: 2018Q2

REPORT INFORMATION
  Report Type: Spontaneous
  Country: FR (occurrence: FR)
  Receive Date: 20150406
  Receipt Date: 20180611
  Transmission Date: 20180711
  Serious: Yes (Hospitalization, Other)
  Sender: FDA-Public Use
  Company Number: FR-SUN PHARMACEUTICAL INDUSTRIES LTD-2015R1-94998

PATIENT
  Age: 65 Year
  Sex: Male

DRUGS (2)
  1. CODEINE [Suspect]
     Active Substance: CODEINE
     Indication: PRODUCT USED FOR UNKNOWN INDICATION
     Dosage: 0.6 G, DAILY
     Route: 065
     Dates: start: 1970
  2. PARACETAMOL [Suspect]
     Active Substance: ACETAMINOPHEN
     Indication: PRODUCT USED FOR UNKNOWN INDICATION
     Dosage: UPTO 10G, DAILY
     Route: 065
     Dates: start: 1970

REACTIONS (6)
  - Hypertension [Not Recovered/Not Resolved]
  - Intentional product misuse [Unknown]
  - Drug dependence [Unknown]
  - Intentional overdose [Unknown]
  - Incorrect drug administration duration [Unknown]
  - Drug abuse [Unknown]
